FAERS Safety Report 9163642 (Version 2)
Quarter: 2013Q2

REPORT INFORMATION
  Report Type: Spontaneous
  Country: US (occurrence: US)
  Receive Date: 20130314
  Receipt Date: 20130424
  Transmission Date: 20140414
  Serious: No
  Sender: FDA-Public Use
  Company Number: US-PFIZER INC-2013084763

PATIENT
  Age: 37 Year
  Sex: Male
  Weight: 86.17 kg

DRUGS (7)
  1. VENLAFAXINE HCL [Suspect]
     Indication: IRRITABILITY
     Dosage: 75 MG, 1X/DAY
     Route: 048
     Dates: start: 2012, end: 20130309
  2. VENLAFAXINE HCL [Suspect]
     Indication: RELAXATION THERAPY
     Dosage: 75 MG, 1X/DAY
     Route: 048
     Dates: start: 20130310
  3. VENLAFAXINE HYDROCHLORIDE [Suspect]
     Indication: IRRITABILITY
     Dosage: 37.5 MG, 1X/DAY
     Route: 048
     Dates: start: 2012, end: 20130309
  4. VENLAFAXINE HYDROCHLORIDE [Suspect]
     Indication: RELAXATION THERAPY
     Dosage: 37.5 MG, 1X/DAY
     Route: 048
     Dates: start: 20130310
  5. PROTONIX [Concomitant]
     Dosage: 40 MG, 2X/DAY
     Route: 048
  6. LISINOPRIL [Concomitant]
     Indication: HYPERTENSION
     Dosage: 20 MG, DAILY
     Route: 048
  7. ZETIA [Concomitant]
     Indication: BLOOD CHOLESTEROL ABNORMAL
     Dosage: 10 MG, 1X/DAY (EVERY NIGHT AT BED TIME)
     Route: 048

REACTIONS (9)
  - Erectile dysfunction [Not Recovered/Not Resolved]
  - Disturbance in sexual arousal [Not Recovered/Not Resolved]
  - Frustration [Unknown]
  - Emotional disorder [Unknown]
  - Headache [Recovering/Resolving]
  - Nausea [Recovering/Resolving]
  - Palpitations [Recovering/Resolving]
  - Blood disorder [Not Recovered/Not Resolved]
  - Feeling abnormal [Not Recovered/Not Resolved]
